FAERS Safety Report 4707675-8 (Version None)
Quarter: 2005Q3

REPORT INFORMATION
  Report Type: 
  Country: None (occurrence: None)
  Receive Date: 20050705
  Receipt Date: 20050621
  Transmission Date: 20060218
  Serious: Yes (Hospitalization, Other)
  Sender: FDA-Public Use
  Company Number: 2005091925

PATIENT
  Age: 1 Day
  Sex: Male
  Weight: 1.9 kg

DRUGS (7)
  1. CYTOTEC [Suspect]
     Indication: ABORTION INDUCED
  2. MIFEGYNE (MIFEPRISTONE) [Suspect]
     Indication: ABORTION INDUCED
  3. URBANYL (CLOBAZAM) [Concomitant]
  4. VALPROIC ACID [Suspect]
     Route: 048
  5. PHENYTOIN [Suspect]
  6. GARDENALE (PHENOBARBITAL SODIUM) [Suspect]
  7. STABLON(TIANEPTINE) [Suspect]

REACTIONS (7)
  - CHYLOTHORAX [None]
  - DRUG EXPOSURE DURING PREGNANCY [None]
  - DRUG INEFFECTIVE [None]
  - FACIAL DYSMORPHISM [None]
  - GROWTH RETARDATION [None]
  - LOW SET EARS [None]
  - PREMATURE BABY [None]
